FAERS Safety Report 7910663-1 (Version None)
Quarter: 2011Q4

REPORT INFORMATION
  Report Type: 
  Country: None (occurrence: None)
  Receive Date: 20111111
  Receipt Date: 20111101
  Transmission Date: 20120403
  Serious: Yes (Hospitalization)
  Sender: FDA-Public Use
  Company Number: BR-ROCHE-744030

PATIENT
  Sex: Female
  Weight: 100 kg

DRUGS (9)
  1. ACTEMRA [Suspect]
     Indication: RHEUMATOID ARTHRITIS
     Dosage: FORM : INFUSION
     Route: 042
  2. METFORMIN HCL [Concomitant]
  3. METHOTREXATE [Suspect]
     Route: 065
  4. DIAZEPAM [Suspect]
     Indication: PRODUCT USED FOR UNKNOWN INDICATION
     Route: 065
  5. AMARYL [Concomitant]
     Indication: DIABETES MELLITUS
  6. OXYCONTIN [Concomitant]
  7. ACTEMRA [Suspect]
     Route: 042
  8. METHOTREXATE [Suspect]
     Indication: PRODUCT USED FOR UNKNOWN INDICATION
     Route: 065
  9. FLUOXETINE HCL [Concomitant]

REACTIONS (13)
  - OEDEMA PERIPHERAL [None]
  - HYPERSENSITIVITY [None]
  - ROAD TRAFFIC ACCIDENT [None]
  - DRUG INEFFECTIVE [None]
  - PAIN [None]
  - SKIN HAEMORRHAGE [None]
  - SWELLING [None]
  - DRUG HYPERSENSITIVITY [None]
  - FATIGUE [None]
  - PAROTITIS [None]
  - CELLULITIS [None]
  - CONFUSIONAL STATE [None]
  - MEMORY IMPAIRMENT [None]
